FAERS Safety Report 11231247 (Version 1)
Quarter: 2015Q3

REPORT INFORMATION
  Report Type: Spontaneous
  Country: FR (occurrence: FR)
  Receive Date: 20150701
  Receipt Date: 20150701
  Transmission Date: 20151125
  Serious: Yes (Other)
  Sender: FDA-Public Use
  Company Number: FR-HOSPIRA-2914640

PATIENT
  Age: 4 Year
  Sex: Female
  Weight: 15 kg

DRUGS (12)
  1. UROMITEXAN [Concomitant]
     Active Substance: MESNA
     Indication: RHABDOMYOSARCOMA
     Dates: start: 20150529
  2. MORPHINE [Concomitant]
     Active Substance: MORPHINE
     Indication: ANALGESIC THERAPY
     Dates: start: 20150529
  3. PARACETAMOL [Concomitant]
     Active Substance: ACETAMINOPHEN
     Indication: PRODUCT USED FOR UNKNOWN INDICATION
     Dates: start: 20150529
  4. SOLU-MEDROL [Concomitant]
     Active Substance: METHYLPREDNISOLONE SODIUM SUCCINATE
     Indication: PRODUCT USED FOR UNKNOWN INDICATION
     Dates: start: 20150529
  5. ZOPHREN                            /00955301/ [Concomitant]
     Active Substance: ONDANSETRON
     Indication: PRODUCT USED FOR UNKNOWN INDICATION
     Dates: start: 20150529
  6. COSMEGEN [Suspect]
     Active Substance: DACTINOMYCIN
     Indication: RHABDOMYOSARCOMA
     Route: 042
     Dates: start: 20150529
  7. NEUROTIN                           /00949202/ [Concomitant]
     Active Substance: ACETYLCARNITINE HYDROCHLORIDE
     Indication: PRODUCT USED FOR UNKNOWN INDICATION
     Dates: start: 20150529
  8. PLASMALYTE 4 G5 [Concomitant]
     Indication: RHABDOMYOSARCOMA
     Dates: start: 20150530
  9. PLASMALYTE 4 G5 [Concomitant]
     Indication: RHABDOMYOSARCOMA
     Dates: start: 20150529
  10. DOXORUBICINE ACCORD [Suspect]
     Active Substance: DOXORUBICIN
     Indication: RHABDOMYOSARCOMA
     Dosage: ON 2 DAYS
     Route: 042
     Dates: start: 20150529, end: 20150530
  11. IFOSFAMIDE. [Suspect]
     Active Substance: IFOSFAMIDE
     Indication: RHABDOMYOSARCOMA
     Dosage: IN 250ML OF G5/DAY ON 2 DAYS
     Route: 042
     Dates: start: 20150529, end: 20150530
  12. VINCRISTINE HOSPIRA [Suspect]
     Active Substance: VINCRISTINE
     Indication: RHABDOMYOSARCOMA
     Route: 042
     Dates: start: 20150529

REACTIONS (2)
  - Encephalopathy [Not Recovered/Not Resolved]
  - Hyponatraemia [Recovered/Resolved]

NARRATIVE: CASE EVENT DATE: 20150530
